FAERS Safety Report 12934496 (Version 2)
Quarter: 2017Q1

REPORT INFORMATION
  Report Type: Spontaneous
  Country: US (occurrence: US)
  Receive Date: 20161111
  Receipt Date: 20170105
  Transmission Date: 20170428
  Serious: No
  Sender: FDA-Public Use
  Company Number: US-GLAXOSMITHKLINE-US2016165549

PATIENT
  Sex: Male
  Weight: 90 kg

DRUGS (6)
  1. NUCALA [Suspect]
     Active Substance: MEPOLIZUMAB
     Indication: ASTHMA
     Dosage: 1 ML, UNK
     Route: 058
     Dates: start: 20160316
  2. XOLAIR [Concomitant]
     Active Substance: OMALIZUMAB
  3. NUCALA [Suspect]
     Active Substance: MEPOLIZUMAB
     Dosage: 1 ML, UNK
     Route: 058
  4. NUCALA [Suspect]
     Active Substance: MEPOLIZUMAB
     Dosage: 1 ML, UNK
     Route: 058
  5. NUCALA [Suspect]
     Active Substance: MEPOLIZUMAB
     Dosage: 1 ML, UNK
     Route: 058
  6. NUCALA [Suspect]
     Active Substance: MEPOLIZUMAB
     Dosage: 1 ML, UNK
     Route: 058
     Dates: end: 20161005

REACTIONS (1)
  - Oedema peripheral [Recovering/Resolving]
